FAERS Safety Report 6945552-2 (Version None)
Quarter: 2010Q3

REPORT INFORMATION
  Report Type: 
  Country: None (occurrence: None)
  Receive Date: 20100827
  Receipt Date: 20100812
  Transmission Date: 20110219
  Serious: Yes (Other)
  Sender: FDA-Public Use
  Company Number: GB-CUBIST-2010S1001265

PATIENT
  Age: 82 Year
  Sex: Female

DRUGS (4)
  1. CUBICIN [Suspect]
     Indication: ENDOCARDITIS STAPHYLOCOCCAL
  2. VANCOMYCIN [Concomitant]
     Indication: ENDOCARDITIS
  3. GENTAMICIN [Concomitant]
     Indication: ENDOCARDITIS
  4. RIFAMPICIN [Concomitant]
     Indication: ENDOCARDITIS

REACTIONS (1)
  - DEVICE RELATED INFECTION [None]
